FAERS Safety Report 15570320 (Version 1)
Quarter: 2018Q4

REPORT INFORMATION
  Report Type: Spontaneous
  Country: US (occurrence: US)
  Receive Date: 20181031
  Receipt Date: 20181031
  Transmission Date: 20190205
  Serious: No
  Sender: FDA-Public Use
  Company Number: US-ABBVIE-18S-163-2501968-00

PATIENT
  Sex: Male

DRUGS (4)
  1. CLARITHROMYCIN. [Suspect]
     Active Substance: CLARITHROMYCIN
     Indication: HYPERSOMNIA
  2. CLARITHROMYCIN XL [Suspect]
     Active Substance: CLARITHROMYCIN
     Indication: FOLLICULITIS
     Route: 065
  3. CLARITHROMYCIN XL [Suspect]
     Active Substance: CLARITHROMYCIN
     Indication: HYPERSOMNIA
  4. CLARITHROMYCIN. [Suspect]
     Active Substance: CLARITHROMYCIN
     Indication: FOLLICULITIS
     Route: 065

REACTIONS (2)
  - Gastrointestinal disorder [Unknown]
  - Vomiting [Unknown]
